FAERS Safety Report 9440504 (Version 1)
Quarter: 2013Q3

REPORT INFORMATION
  Report Type: Spontaneous
  Country: CA (occurrence: CA)
  Receive Date: 20130805
  Receipt Date: 20130805
  Transmission Date: 20140515
  Serious: Yes (Life-Threatening, Hospitalization)
  Sender: FDA-Public Use
  Company Number: CA-TEVA-423002USA

PATIENT
  Age: 16 Year
  Sex: Male
  Weight: 111 kg

DRUGS (1)
  1. FLUOXETINE [Suspect]
     Dosage: 10 MILLIGRAM DAILY;
     Route: 048

REACTIONS (8)
  - Akathisia [Recovered/Resolved]
  - Condition aggravated [Recovered/Resolved]
  - Hypoaesthesia [Recovered/Resolved]
  - Intentional self-injury [Recovered/Resolved]
  - Mood altered [Recovered/Resolved]
  - Restlessness [Recovered/Resolved]
  - Social avoidant behaviour [Recovered/Resolved]
  - Tremor [Recovered/Resolved]
